FAERS Safety Report 5702012-4 (Version None)
Quarter: 2008Q2

REPORT INFORMATION
  Report Type: 
  Country: None (occurrence: None)
  Receive Date: 20080411
  Receipt Date: 20080401
  Transmission Date: 20081010
  Serious: Yes (Other)
  Sender: FDA-Public Use
  Company Number: FI-AMGEN-US267164

PATIENT
  Age: 37 Year
  Sex: Female

DRUGS (3)
  1. ENBREL [Suspect]
     Indication: DRUG USE FOR UNKNOWN INDICATION
     Route: 058
  2. SULFASALAZINE [Concomitant]
     Indication: SACROILIITIS
  3. METHOTREXATE [Concomitant]
     Indication: SACROILIITIS

REACTIONS (1)
  - LEUKOPENIA [None]
